FAERS Safety Report 4344878-9 (Version None)
Quarter: 2004Q2

REPORT INFORMATION
  Report Type: 
  Country: None (occurrence: None)
  Receive Date: 20040423
  Receipt Date: 20031210
  Transmission Date: 20050107
  Serious: Yes (Disabling, Other)
  Sender: FDA-Public Use
  Company Number: US-GLAXOSMITHKLINE-A0442641A

PATIENT
  Age: 48 Year
  Sex: Male

DRUGS (5)
  1. ZOFRAN [Suspect]
     Dosage: 20MG SINGLE DOSE
     Route: 042
     Dates: start: 20031209, end: 20031209
  2. BENADRYL [Concomitant]
  3. DEXAMETHASONE [Concomitant]
  4. PACLITAXEL [Concomitant]
  5. CARBOPLATIN [Concomitant]

REACTIONS (1)
  - DYSTONIA [None]
